FAERS Safety Report 5324210-4 (Version None)
Quarter: 2007Q2

REPORT INFORMATION
  Report Type: 
  Country: None (occurrence: None)
  Receive Date: 20070514
  Receipt Date: 20070430
  Transmission Date: 20071010
  Serious: Yes (Other)
  Sender: FDA-Public Use
  Company Number: GB-ROCHE-496021

PATIENT
  Age: 19 Year
  Sex: Male
  Weight: 76 kg

DRUGS (2)
  1. ROACCUTANE [Suspect]
     Indication: ACNE
     Route: 048
     Dates: start: 20070222, end: 20070327
  2. MINOCIN [Concomitant]
     Indication: ACNE
     Route: 048
     Dates: start: 20050101, end: 20070215

REACTIONS (1)
  - ERYTHEMA MULTIFORME [None]
